FAERS Safety Report 5359058-8 (Version None)
Quarter: 2007Q2

REPORT INFORMATION
  Report Type: 
  Country: None (occurrence: None)
  Receive Date: 20070615
  Receipt Date: 20070604
  Transmission Date: 20071010
  Serious: Yes (Hospitalization)
  Sender: FDA-Public Use
  Company Number: FR-ELI_LILLY_AND_COMPANY-FR200701000814

PATIENT
  Age: 82 Year
  Sex: Female
  Weight: 52 kg

DRUGS (4)
  1. FORTEO [Suspect]
     Indication: OSTEOPOROSIS
     Dosage: 20 UG, DAILY (1/D)
     Route: 058
     Dates: start: 20060821, end: 20061021
  2. FONZYLANE [Concomitant]
  3. NEXIUM [Concomitant]
  4. SKENAN [Concomitant]

REACTIONS (4)
  - DIARRHOEA [None]
  - ERYSIPELAS [None]
  - RESPIRATORY FAILURE [None]
  - SCLERODERMA [None]
